FAERS Safety Report 23745678 (Version 2)
Quarter: 2024Q3

REPORT INFORMATION
  Report Type: Spontaneous
  Country: US (occurrence: US)
  Receive Date: 20240416
  Receipt Date: 20240801
  Transmission Date: 20241017
  Serious: No
  Sender: SANDOZ
  Company Number: US-SANDOZ-SDZ2024US038967

PATIENT
  Sex: Female

DRUGS (1)
  1. ESTRADIOL [Suspect]
     Active Substance: ESTRADIOL
     Indication: Product used for unknown indication
     Dosage: 0.025MG/24H 8TTS US, TWO PATCHES WEEKLY
     Route: 065

REACTIONS (4)
  - Product adhesion issue [Unknown]
  - Wrong technique in product usage process [Unknown]
  - Stress [Unknown]
  - Headache [Unknown]
